FAERS Safety Report 4507124-9 (Version None)
Quarter: 2004Q4

REPORT INFORMATION
  Report Type: 
  Country: None (occurrence: None)
  Receive Date: 20041122
  Receipt Date: 20041117
  Transmission Date: 20050328
  Serious: Yes (Hospitalization)
  Sender: FDA-Public Use
  Company Number: SE-MERCK-0411SWE00034

PATIENT
  Age: 62 Year
  Sex: Female

DRUGS (10)
  1. VIOXX [Suspect]
     Indication: LOCALISED OSTEOARTHRITIS
     Route: 048
     Dates: start: 20000131, end: 20010125
  2. VIOXX [Suspect]
     Route: 048
     Dates: start: 20010125, end: 20040930
  3. AMLODIPINE BESYLATE [Concomitant]
     Route: 065
  4. SPIRONOLACTONE [Concomitant]
     Route: 065
  5. ASPIRIN [Concomitant]
     Route: 065
  6. ZOCOR [Concomitant]
     Route: 065
  7. TRAMADOL HYDROCHLORIDE [Concomitant]
     Route: 065
  8. TERBUTALINE SULFATE [Concomitant]
     Route: 065
  9. BUDESONIDE [Concomitant]
     Route: 065
  10. ACETAMINOPHEN [Concomitant]
     Route: 065

REACTIONS (1)
  - CEREBROVASCULAR ACCIDENT [None]
